FAERS Safety Report 17150211 (Version 1)
Quarter: 2019Q4

REPORT INFORMATION
  Report Type: Spontaneous
  Country: US (occurrence: US)
  Receive Date: 20191213
  Receipt Date: 20191213
  Transmission Date: 20200122
  Serious: No
  Sender: FDA-Public Use
  Company Number: US-TEVA-2019-US-1152735

PATIENT
  Age: 66 Year
  Sex: Male
  Weight: 77.73 kg

DRUGS (2)
  1. GABAPENTIN. [Suspect]
     Active Substance: GABAPENTIN
     Dosage: 6 DOSAGE FORMS DAILY; 1 TABLET-= I DOSAGE FORM
     Route: 065
  2. GABAPENTIN. [Suspect]
     Active Substance: GABAPENTIN
     Indication: TINNITUS
     Dosage: 3 DOSAGE FORMS DAILY; 1 TABLET=1 DOSAGE FORM
     Route: 065
     Dates: start: 201907

REACTIONS (2)
  - Weight increased [Unknown]
  - Product use in unapproved indication [Unknown]
